FAERS Safety Report 9606837 (Version 2)
Quarter: 2013Q4

REPORT INFORMATION
  Report Type: Spontaneous
  Country: US (occurrence: US)
  Receive Date: 20131008
  Receipt Date: 20131008
  Transmission Date: 20140711
  Serious: No
  Sender: FDA-Public Use
  Company Number: US-AMGEN-USASP2013048934

PATIENT
  Age: 62 Year
  Sex: Female
  Weight: 48.07 kg

DRUGS (1)
  1. PROLIA [Suspect]
     Indication: OSTEOPOROSIS POSTMENOPAUSAL
     Dosage: 60 UNK, UNK
     Route: 058
     Dates: start: 20121227, end: 20121227

REACTIONS (3)
  - Pain in jaw [Recovered/Resolved]
  - Dysphagia [Recovered/Resolved]
  - Jaw disorder [Recovered/Resolved]
